FAERS Safety Report 4824050-6 (Version None)
Quarter: 2005Q4

REPORT INFORMATION
  Report Type: 
  Country: None (occurrence: None)
  Receive Date: 20051108
  Receipt Date: 20051026
  Transmission Date: 20060501
  Serious: Yes (Death, Hospitalization)
  Sender: FDA-Public Use
  Company Number: US_0507120420

PATIENT
  Age: 80 Year
  Sex: Male
  Weight: 88 kg

DRUGS (17)
  1. PEMETREXED [Suspect]
     Indication: NON-SMALL CELL LUNG CANCER
     Dosage: 500 MG/M2
     Dates: start: 20050708, end: 20050805
  2. GEMCITABINE HYDROCHLORIDE-IV (GEMCITABINE) [Suspect]
     Indication: NON-SMALL CELL LUNG CANCER
     Dosage: 1500 MG/M2
     Dates: start: 20050708, end: 20050805
  3. DIGOXIN [Concomitant]
  4. SPIRIVA [Concomitant]
  5. PERCOCET [Concomitant]
  6. DEXAMETHASONE [Concomitant]
  7. FOLIC ACID [Concomitant]
  8. SOTALOL [Concomitant]
  9. CARAFATE [Concomitant]
  10. POLYETHYLENE GLYCOL [Concomitant]
  11. VITAMIN B-12 [Concomitant]
  12. ZOFRAN [Concomitant]
  13. MEGACE [Concomitant]
  14. CELEBREX [Concomitant]
  15. CITRACAL + D [Concomitant]
  16. LORTAB [Concomitant]
  17. OXYGEN [Concomitant]

REACTIONS (20)
  - ACUTE RESPIRATORY FAILURE [None]
  - ANAEMIA [None]
  - ASPARTATE AMINOTRANSFERASE INCREASED [None]
  - ATRIAL FIBRILLATION [None]
  - BLOOD ALKALINE PHOSPHATASE INCREASED [None]
  - BLOOD CHLORIDE DECREASED [None]
  - BLOOD POTASSIUM INCREASED [None]
  - BLOOD PRESSURE INCREASED [None]
  - ELECTROCARDIOGRAM ST SEGMENT ABNORMAL [None]
  - HYPOTENSION [None]
  - LEUKOPENIA [None]
  - LOSS OF CONSCIOUSNESS [None]
  - NON-CARDIOGENIC PULMONARY OEDEMA [None]
  - PAIN [None]
  - PLEURAL EFFUSION [None]
  - PNEUMONIA [None]
  - PULMONARY OEDEMA [None]
  - SEPTIC SHOCK [None]
  - TACHYCARDIA [None]
  - VOMITING [None]
